FAERS Safety Report 7073515-8 (Version None)
Quarter: 2010Q4

REPORT INFORMATION
  Report Type: 
  Country: None (occurrence: None)
  Receive Date: 20101029
  Receipt Date: 20100812
  Transmission Date: 20110411
  Serious: No
  Sender: FDA-Public Use
  Company Number: A0868167A

PATIENT
  Age: 61 Year
  Sex: Female

DRUGS (9)
  1. ADVAIR DISKUS 100/50 [Suspect]
     Indication: ASTHMA
     Dosage: 1PUFF TWICE PER DAY
     Route: 055
  2. AMBIEN [Concomitant]
  3. SPIRIVA [Concomitant]
  4. CENTRUM SILVER [Concomitant]
  5. FLAX SEED OIL [Concomitant]
  6. VITAMIN D [Concomitant]
  7. CALCIUM [Concomitant]
  8. UNKNOWN MEDICATION [Concomitant]
  9. MAXAIR [Concomitant]

REACTIONS (5)
  - CONDITION AGGRAVATED [None]
  - DYSPNOEA [None]
  - PAINFUL RESPIRATION [None]
  - PRODUCT QUALITY ISSUE [None]
  - WHEEZING [None]
